FAERS Safety Report 25306292 (Version 2)
Quarter: 2025Q2

REPORT INFORMATION
  Report Type: Report from Study
  Country: US (occurrence: US)
  Receive Date: 20250513
  Receipt Date: 20250514
  Transmission Date: 20250716
  Serious: No
  Sender: BRISTOL-MYERS SQUIBB COMPANY
  Company Number: US-BRISTOL-MYERS SQUIBB COMPANY-2025-069338

PATIENT
  Age: 87 Year
  Sex: Male
  Weight: 88.45 kg

DRUGS (1)
  1. ELIQUIS [Suspect]
     Active Substance: APIXABAN
     Indication: Atrial fibrillation
     Route: 048
     Dates: start: 2025

REACTIONS (1)
  - Nasopharyngitis [Unknown]

NARRATIVE: CASE EVENT DATE: 20250501
